FAERS Safety Report 8392809-7 (Version None)
Quarter: 2012Q2

REPORT INFORMATION
  Report Type: 
  Country: None (occurrence: None)
  Receive Date: 20120529
  Receipt Date: 20120516
  Transmission Date: 20120825
  Serious: Yes (Hospitalization)
  Sender: FDA-Public Use
  Company Number: US-ELI_LILLY_AND_COMPANY-US201201007380

PATIENT
  Sex: Female

DRUGS (15)
  1. REVATIO [Concomitant]
     Indication: CARDIAC DISORDER
  2. TRACLEER [Concomitant]
     Indication: CARDIAC DISORDER
  3. FORADIL [Concomitant]
  4. FORTEO [Suspect]
     Dosage: 20 UG, QD
  5. SINGULAIR [Concomitant]
     Indication: HYPERSENSITIVITY
  6. FORTEO [Suspect]
     Indication: OSTEOPOROSIS
     Dosage: 20 UG, QD
  7. CARBIDOPA AND LEVODOPA [Concomitant]
     Indication: MUSCLE SPASMS
  8. CALCIUM [Concomitant]
     Dosage: 600 MG, UNK
  9. MULTI-VITAMINS [Concomitant]
  10. POTASSIUM CHLORIDE [Concomitant]
  11. FORTEO [Suspect]
     Dosage: 20 UG, QD
  12. VITAMIN C [Concomitant]
  13. ASPIRIN [Concomitant]
  14. ALBUTEROL [Concomitant]
  15. ALLEGRA [Concomitant]

REACTIONS (8)
  - ATRIAL FIBRILLATION [None]
  - PULMONARY OEDEMA [None]
  - PNEUMONIA [None]
  - FATIGUE [None]
  - DIZZINESS [None]
  - ARRHYTHMIA [None]
  - ASTHENIA [None]
  - MALAISE [None]
